FAERS Safety Report 19717990 (Version 2)
Quarter: 2021Q3

REPORT INFORMATION
  Report Type: Report from Study
  Country: US (occurrence: US)
  Receive Date: 20210819
  Receipt Date: 20210930
  Transmission Date: 20211014
  Serious: Yes (Death, Other)
  Sender: FDA-Public Use
  Company Number: US-SA-2015SA004280

PATIENT
  Age: 45 Year
  Sex: Female

DRUGS (5)
  1. TERIFLUNOMIDE. [Suspect]
     Active Substance: TERIFLUNOMIDE
     Dosage: 10 MG, BID
     Route: 048
     Dates: start: 201610, end: 201610
  2. TERIFLUNOMIDE. [Suspect]
     Active Substance: TERIFLUNOMIDE
     Dosage: 14 MG, QD
     Route: 048
     Dates: start: 201610
  3. TERIFLUNOMIDE. [Suspect]
     Active Substance: TERIFLUNOMIDE
     Indication: MULTIPLE SCLEROSIS
     Dosage: 14 MG, QD
     Route: 048
     Dates: start: 20141107
  4. TERIFLUNOMIDE. [Suspect]
     Active Substance: TERIFLUNOMIDE
     Dosage: 14 MG, QD
     Route: 048
     Dates: start: 20190219
  5. AMPYRA [Concomitant]
     Active Substance: DALFAMPRIDINE
     Dosage: UNK

REACTIONS (10)
  - Neoplasm malignant [Unknown]
  - Urinary tract infection [Unknown]
  - Fall [Unknown]
  - Vertigo [Unknown]
  - Product dose omission issue [Unknown]
  - Death [Fatal]
  - Product use issue [Unknown]
  - Kidney infection [Not Recovered/Not Resolved]
  - Intermenstrual bleeding [Not Recovered/Not Resolved]
  - Pain [Unknown]

NARRATIVE: CASE EVENT DATE: 201610
